FAERS Safety Report 19766584 (Version 2)
Quarter: 2021Q4

REPORT INFORMATION
  Report Type: Spontaneous
  Country: US (occurrence: US)
  Receive Date: 20210830
  Receipt Date: 20211110
  Transmission Date: 20220303
  Serious: Yes (Other)
  Sender: FDA-Public Use
  Company Number: US-PFIZER INC-2020316189

PATIENT
  Age: 79 Year
  Sex: Female

DRUGS (2)
  1. LYRICA [Suspect]
     Active Substance: PREGABALIN
     Indication: Trigeminal neuralgia
     Dosage: 150 MG, 2X/DAY (2 CAPSULES (150 MG) EVERY 12 HOURS)
     Route: 048
     Dates: start: 20201202
  2. LYRICA [Suspect]
     Active Substance: PREGABALIN
     Dosage: 225 MG, 2X/DAY (TAKE 3 CAPSULES (225 MG) EVERY 12 HOURS)
     Route: 048

REACTIONS (1)
  - Rocky mountain spotted fever [Unknown]
